FAERS Safety Report 4805603-8 (Version None)
Quarter: 2005Q4

REPORT INFORMATION
  Report Type: 
  Country: None (occurrence: None)
  Receive Date: 20051018
  Receipt Date: 20051005
  Transmission Date: 20060501
  Serious: Yes (Disabling, Other)
  Sender: FDA-Public Use
  Company Number: 2005139286

PATIENT
  Sex: Male

DRUGS (4)
  1. VIAGRA [Suspect]
     Indication: ERECTILE DYSFUNCTION
     Dosage: 50 MG (50 MG, AS NECESSARY), ORAL
     Route: 048
     Dates: start: 20020101
  2. COMBIVENT [Concomitant]
  3. PERCOCET [Concomitant]
  4. VALIUM [Concomitant]

REACTIONS (4)
  - ARTHROPATHY [None]
  - FALL [None]
  - NERVE COMPRESSION [None]
  - SURGERY [None]
